FAERS Safety Report 7657053-7 (Version None)
Quarter: 2011Q3

REPORT INFORMATION
  Report Type: 
  Country: None (occurrence: None)
  Receive Date: 20110804
  Receipt Date: 20110801
  Transmission Date: 20111222
  Serious: Yes (Hospitalization)
  Sender: FDA-Public Use
  Company Number: FR-BAYER-2011-067868

PATIENT
  Age: 66 Year
  Sex: Male

DRUGS (6)
  1. ULTRAVIST 150 [Suspect]
     Indication: COMPUTERISED TOMOGRAM
     Dosage: 1 DF, ONCE
     Route: 042
     Dates: start: 20110514, end: 20110514
  2. LERCANIDIPINE [Concomitant]
     Dosage: 20 MG, QD IN THE MORNING
     Dates: start: 20070801
  3. BISOPROLOL FUMARATE [Concomitant]
     Dosage: 10 MG, QD IN THE MORNING
     Dates: start: 20031101
  4. OMEPRAZOLE [Concomitant]
     Dosage: 20 MG, BID IN THE MORNING AND EVENING
     Dates: start: 19950101
  5. RAMIPRIL [Concomitant]
     Dosage: 10 MG, QD IN THE MORNING
     Dates: start: 20031101
  6. ZOVIRAX [Suspect]
     Dosage: 800 MG, TID
     Route: 042
     Dates: start: 20110513, end: 20110519

REACTIONS (1)
  - RENAL TUBULAR NECROSIS [None]
